FAERS Safety Report 17720827 (Version 3)
Quarter: 2020Q2

REPORT INFORMATION
  Report Type: Spontaneous
  Country: DE (occurrence: DE)
  Receive Date: 20200429
  Receipt Date: 20200609
  Transmission Date: 20200714
  Serious: Yes (Life-Threatening, Hospitalization, Other)
  Sender: FDA-Public Use
  Company Number: DE-AUROBINDO-AUR-APL-2020-017252

PATIENT
  Age: 70 Year
  Sex: Male
  Weight: 100 kg

DRUGS (10)
  1. RIVAROXABAN [Concomitant]
     Active Substance: RIVAROXABAN
     Indication: PRODUCT USED FOR UNKNOWN INDICATION
     Dosage: 20 MILLIGRAM, ONCE A DAY (1-0-0)
     Route: 065
  2. GINKGO BILOBA [Concomitant]
     Active Substance: GINKGO
     Indication: PRODUCT USED FOR UNKNOWN INDICATION
     Dosage: 200 MILLIGRAM, EVERY OTHER DAY (1X1 EVERY 2 DAYS)
     Route: 065
  3. TAFLUPROST [Concomitant]
     Active Substance: TAFLUPROST
     Indication: PRODUCT USED FOR UNKNOWN INDICATION
     Dosage: 15 DOSAGE FORM, ONCE A DAY, (15 UG/ML, 0-0-1)
     Route: 065
  4. BISOPROLOL [Interacting]
     Active Substance: BISOPROLOL
     Indication: PRODUCT USED FOR UNKNOWN INDICATION
     Dosage: 5 MILLIGRAM, ONCE A DAY (1-0-0)
     Route: 065
  5. TIMOLOL. [Interacting]
     Active Substance: TIMOLOL
     Indication: PRODUCT USED FOR UNKNOWN INDICATION
     Dosage: UNK UNK, ONCE A DAY (0-0-1)
     Route: 065
  6. CANDESARTAN. [Concomitant]
     Active Substance: CANDESARTAN
     Indication: PRODUCT USED FOR UNKNOWN INDICATION
     Dosage: 16 MILLIGRAM, ONCE A DAY (1-0-0)
     Route: 065
  7. AMLODIPINE [Suspect]
     Active Substance: AMLODIPINE BESYLATE
     Indication: PRODUCT USED FOR UNKNOWN INDICATION
     Dosage: 5 MILLIGRAM, ONCE A DAY (1-0-0)
     Route: 065
  8. DRONEDARON [Interacting]
     Active Substance: DRONEDARONE
     Indication: ATRIAL FIBRILLATION
     Dosage: 400 MILLIGRAM, TWO TIMES A DAY
     Route: 065
  9. ATROPINE. [Suspect]
     Active Substance: ATROPINE
     Indication: BRADYCARDIA
     Dosage: UNK
     Route: 065
  10. ALFUZOSIN [Concomitant]
     Active Substance: ALFUZOSIN
     Indication: PRODUCT USED FOR UNKNOWN INDICATION
     Dosage: 10 MILLIGRAM, ONCE A DAY (1-0-0)
     Route: 065

REACTIONS (12)
  - Drug ineffective [Unknown]
  - Drug interaction [Recovered/Resolved]
  - Oversensing [Recovered/Resolved]
  - Atrioventricular block [Recovered/Resolved]
  - Bradycardia [Recovered/Resolved]
  - Atrioventricular block second degree [Recovered/Resolved]
  - Cardiovascular insufficiency [Recovered/Resolved]
  - Metabolic disorder [Recovered/Resolved]
  - Infection [Recovered/Resolved]
  - Electrolyte imbalance [Recovered/Resolved]
  - Diastolic dysfunction [Recovered/Resolved]
  - Ventricular hypertrophy [Recovered/Resolved]
